FAERS Safety Report 7349356-0 (Version None)
Quarter: 2011Q1

REPORT INFORMATION
  Report Type: 
  Country: None (occurrence: None)
  Receive Date: 20110314
  Receipt Date: 20100921
  Transmission Date: 20110831
  Serious: No
  Sender: FDA-Public Use
  Company Number: US-ABBOTT-10P-163-0672975-00

PATIENT
  Sex: Female
  Weight: 49.94 kg

DRUGS (5)
  1. ABILIFY [Concomitant]
     Indication: PRODUCT USED FOR UNKNOWN INDICATION
  2. DEXAMETHASONE [Suspect]
     Indication: PRODUCT USED FOR UNKNOWN INDICATION
  3. DEPAKOTE [Suspect]
     Indication: MENTAL DISORDER
     Route: 048
  4. MULTI-VITAMIN [Concomitant]
     Indication: PRODUCT USED FOR UNKNOWN INDICATION
  5. AMPYRA [Concomitant]
     Indication: MULTIPLE SCLEROSIS

REACTIONS (2)
  - VISUAL IMPAIRMENT [None]
  - CATARACT [None]
